FAERS Safety Report 5676778-6 (Version None)
Quarter: 2008Q2

REPORT INFORMATION
  Report Type: 
  Country: None (occurrence: None)
  Receive Date: 20080311
  Receipt Date: 20080107
  Transmission Date: 20081010
  Serious: No
  Sender: FDA-Public Use
  Company Number: 002#2#2008-00016

PATIENT
  Sex: Female

DRUGS (4)
  1. NEUPRO [Suspect]
     Indication: RESTLESS LEGS SYNDROME
     Dosage: 6MG/24H, 1 IN 1
     Dates: start: 20071101, end: 20071230
  2. CYMBALTA [Concomitant]
  3. AMBIEN [Concomitant]
  4. REQUIP [Concomitant]

REACTIONS (1)
  - APPLICATION SITE SWELLING [None]
